FAERS Safety Report 5150444-8 (Version None)
Quarter: 2006Q4

REPORT INFORMATION
  Report Type: 
  Country: None (occurrence: None)
  Receive Date: 20061114
  Receipt Date: 20060621
  Transmission Date: 20070319
  Serious: Yes (Other)
  Sender: FDA-Public Use
  Company Number: PHNU2006DE02338

PATIENT
  Age: 67 Year
  Sex: Male
  Weight: 65 kg

DRUGS (8)
  1. ZOMETA [Suspect]
     Indication: METASTASES TO BONE
     Dosage: 4 MG, QMO
     Route: 042
     Dates: start: 20020919, end: 20060504
  2. ZOMETA [Suspect]
     Dosage: 4 MG, QMO
     Route: 042
     Dates: start: 20061009
  3. ZOLADEX [Concomitant]
     Indication: PROSTATE CANCER
     Dosage: 3600 MG, UNK
     Route: 065
     Dates: start: 20020701
  4. FENTANYL CITRATE [Concomitant]
     Indication: PAIN
     Dosage: 75 UG, UNK
     Route: 065
     Dates: start: 20060301
  5. IBUPROFEN [Concomitant]
     Indication: PAIN
     Dosage: 800 MG, BID
     Route: 065
     Dates: start: 20030301
  6. DIAZEPAM [Concomitant]
     Indication: RESTLESSNESS
     Dosage: UNK, PRN
     Route: 065
  7. DORMICUM [Concomitant]
     Indication: MENTAL DISORDER
     Dosage: UNK, PRN
     Route: 065
  8. HALOPERIDOL [Concomitant]
     Indication: SLEEP DISORDER
     Dosage: UNK, PRN
     Route: 065

REACTIONS (4)
  - BIOPSY SITE UNSPECIFIED ABNORMAL [None]
  - ORAL SURGERY [None]
  - OSTEOMYELITIS [None]
  - OSTEONECROSIS [None]
